FAERS Safety Report 17391703 (Version 1)
Quarter: 2020Q1

REPORT INFORMATION
  Report Type: Spontaneous
  Country: DE (occurrence: DE)
  Receive Date: 20200207
  Receipt Date: 20200207
  Transmission Date: 20200409
  Serious: Yes (Other)
  Sender: FDA-Public Use
  Company Number: DE-TEVA-2020-DE-1182857

PATIENT
  Sex: Male

DRUGS (1)
  1. SILDENAFIL 100 MG [Suspect]
     Active Substance: SILDENAFIL
     Route: 048

REACTIONS (1)
  - Erectile dysfunction [Unknown]
